FAERS Safety Report 8564617-5 (Version None)
Quarter: 2012Q3

REPORT INFORMATION
  Report Type: 
  Country: None (occurrence: None)
  Receive Date: 20120803
  Receipt Date: 19820621
  Transmission Date: 20120928
  Serious: No
  Sender: FDA-Public Use
  Company Number: US-009507513-82070162

PATIENT

DRUGS (3)
  1. TOLINASE [Concomitant]
  2. RESTORIL [Concomitant]
  3. CLINORIL [Suspect]
     Dosage: 600 MG, TID
     Route: 048
     Dates: start: 19820101, end: 19820614

REACTIONS (1)
  - ALOPECIA [None]
